FAERS Safety Report 8868608 (Version 1)
Quarter: 2012Q4

REPORT INFORMATION
  Report Type: 
  Country: US (occurrence: US)
  Receive Date: 20121026
  Receipt Date: 20121026
  Transmission Date: 20130627
  Serious: No
  Sender: FDA-Public Use
  Company Number: US-AMGEN-USASP2012046243

PATIENT
  Sex: Female
  Weight: 103.86 kg

DRUGS (12)
  1. ENBREL [Suspect]
     Indication: PRODUCT USED FOR UNKNOWN INDICATION
     Dosage: 50 mg, qwk
     Route: 058
  2. MOTRIN [Concomitant]
     Dosage: 800 mg, UNK
  3. AMBIEN [Concomitant]
     Dosage: 10 mg, UNK
  4. PREDNISONE [Concomitant]
     Dosage: 5 mg, UNK
  5. ALENDRONATE [Concomitant]
     Dosage: 70 mg, UNK
  6. HYDROCHLOROTH [Concomitant]
     Dosage: 50 mg, UNK
  7. ISONIAZID [Concomitant]
     Dosage: 100 mg, UNK
  8. VITAMIN D /00107901/ [Concomitant]
     Dosage: 1000 unit, UNK
  9. VITAMIN C                          /00008001/ [Concomitant]
     Dosage: 500 mg, UNK
  10. FOLIC ACID [Concomitant]
  11. LEVOXYL [Concomitant]
     Dosage: 25 mug, UNK
  12. SENIOR [Concomitant]

REACTIONS (1)
  - Injection site bruising [Unknown]
